FAERS Safety Report 5215084-0 (Version None)
Quarter: 2007Q1

REPORT INFORMATION
  Report Type: 
  Country: None (occurrence: None)
  Receive Date: 20061107
  Receipt Date: 20060710
  Transmission Date: 20070707
  Serious: No
  Sender: FDA-Public Use
  Company Number: 200613102BWH

PATIENT
  Sex: Male

DRUGS (6)
  1. LEVITRA [Suspect]
     Indication: ERECTILE DYSFUNCTION
     Dosage: 20 MG, ONCE, ORAL
     Route: 048
     Dates: start: 20060501
  2. ZOCOR [Concomitant]
  3. AVAPRO [Concomitant]
  4. SKELAXIN [Concomitant]
  5. CELEBREX [Concomitant]
  6. NAPROSYN [Concomitant]

REACTIONS (3)
  - CHEST PAIN [None]
  - HEADACHE [None]
  - HYPERHIDROSIS [None]
